FAERS Safety Report 4790722-5 (Version None)
Quarter: 2005Q3

REPORT INFORMATION
  Report Type: 
  Country: None (occurrence: None)
  Receive Date: 20050914
  Receipt Date: 20041223
  Transmission Date: 20060218
  Serious: Yes (Hospitalization, Other)
  Sender: FDA-Public Use
  Company Number: 163-20785-04120592

PATIENT
  Age: 45 Year
  Sex: Female
  Weight: 88.4 kg

DRUGS (5)
  1. THALOMID [Suspect]
     Indication: MALIGNANT MELANOMA
     Dosage: 200 MG INCREASED BY 100 MG DAILY  AT 2 WEEK INTERVALS IF TOLERATED UP TO 400 MG/DAY,DAILY,  ORAL
     Route: 048
     Dates: start: 20041116, end: 20041213
  2. THALOMID [Suspect]
     Indication: METASTASES TO CENTRAL NERVOUS SYSTEM
     Dosage: 200 MG INCREASED BY 100 MG DAILY  AT 2 WEEK INTERVALS IF TOLERATED UP TO 400 MG/DAY,DAILY,  ORAL
     Route: 048
     Dates: start: 20041116, end: 20041213
  3. TEMOZOLOMIDE (TEMOZOLOMIDE) [Suspect]
     Indication: MALIGNANT MELANOMA
     Dosage: 75 MG/M2 FOR 6 WEEKS, EVERY 8 WEEKS, DAILY, ORAL
     Route: 048
     Dates: start: 20041116, end: 20041213
  4. TEMOZOLOMIDE (TEMOZOLOMIDE) [Suspect]
     Indication: METASTASES TO CENTRAL NERVOUS SYSTEM
     Dosage: 75 MG/M2 FOR 6 WEEKS, EVERY 8 WEEKS, DAILY, ORAL
     Route: 048
     Dates: start: 20041116, end: 20041213
  5. QUININE SULFATE [Concomitant]

REACTIONS (3)
  - CHEST PAIN [None]
  - INTERNATIONAL NORMALISED RATIO INCREASED [None]
  - PULMONARY EMBOLISM [None]
